FAERS Safety Report 13563465 (Version 6)
Quarter: 2020Q3

REPORT INFORMATION
  Report Type: Report from Study
  Country: GB (occurrence: GB)
  Receive Date: 20170519
  Receipt Date: 20180312
  Transmission Date: 20201104
  Serious: Yes (Hospitalization, Other)
  Sender: FDA-Public Use
  Company Number: GB-JNJFOC-20170515856

PATIENT
  Age: 7 Year
  Sex: Female
  Weight: 21.4 kg

DRUGS (34)
  1. COTRIMOXAZOLE [Concomitant]
     Active Substance: SULFAMETHOXAZOLE\TRIMETHOPRIM
     Indication: NEOPLASM PROPHYLAXIS
     Dosage: 240 MG ? 720 MG DAILY AND MONDAY AND TUESDAY
     Route: 048
     Dates: start: 20170421
  2. CYCLOPHOSPHAMIDE. [Concomitant]
     Active Substance: CYCLOPHOSPHAMIDE
     Indication: T-CELL LYMPHOMA
     Route: 065
  3. PIRITON [Concomitant]
     Active Substance: CHLORPHENIRAMINE MALEATE
     Route: 048
     Dates: start: 20170614, end: 20170614
  4. RIVAROXABAN [Suspect]
     Active Substance: RIVAROXABAN
     Indication: EMBOLISM VENOUS
     Route: 048
     Dates: start: 20170428, end: 20170508
  5. DEXAMETHASONE. [Concomitant]
     Active Substance: DEXAMETHASONE
     Indication: T-CELL LYMPHOMA
     Route: 048
     Dates: start: 20170511, end: 20170518
  6. DIHYDROCODEINE [Concomitant]
     Active Substance: DIHYDROCODEINE
     Indication: PAIN
     Route: 048
     Dates: start: 20170427
  7. VINCRISTINE [Concomitant]
     Active Substance: VINCRISTINE
     Indication: T-CELL LYMPHOMA
     Dosage: CUMULATIVE DOSE TO FIRST REACTION 26.1 MG ????DOSAGE : 0.8 MG ? 1.45 MG DAILY
     Route: 042
     Dates: start: 20170421, end: 20170920
  8. MOVICOL [Concomitant]
     Active Substance: POLYETHYLENE GLYCOL 3350\POTASSIUM CHLORIDE\SODIUM BICARBONATE\SODIUM CHLORIDE
     Indication: CONSTIPATION
     Dosage: 6 SACHETS
     Route: 048
     Dates: start: 20170502, end: 20170503
  9. MERCAPTOPURINE. [Concomitant]
     Active Substance: MERCAPTOPURINE
     Indication: T-CELL LYMPHOMA
     Route: 065
     Dates: start: 20170525, end: 20170608
  10. PEGASPARGASE [Concomitant]
     Active Substance: PEGASPARGASE
     Indication: T-CELL LYMPHOMA
     Route: 030
     Dates: start: 20170507, end: 20170507
  11. DAUNORUBICIN [Concomitant]
     Active Substance: DAUNORUBICIN
     Indication: T-CELL LYMPHOMA
     Route: 042
     Dates: start: 20170421, end: 20170421
  12. DAUNORUBICIN [Concomitant]
     Active Substance: DAUNORUBICIN
     Indication: T-CELL LYMPHOMA
     Route: 042
     Dates: start: 20170428, end: 20170428
  13. MOVICOL [Concomitant]
     Active Substance: POLYETHYLENE GLYCOL 3350\POTASSIUM CHLORIDE\SODIUM BICARBONATE\SODIUM CHLORIDE
     Indication: CONSTIPATION
     Dosage: 1 SACHET
     Route: 048
     Dates: start: 20170430
  14. TINZAPARIN [Concomitant]
     Active Substance: TINZAPARIN
     Dosage: DOSAGE; 4280 U ? 8000 U
     Route: 058
     Dates: start: 20170509
  15. CYTARABINE. [Concomitant]
     Active Substance: CYTARABINE
     Indication: T-CELL LYMPHOMA
     Route: 042
     Dates: start: 20170525, end: 20170604
  16. RIVAROXABAN [Suspect]
     Active Substance: RIVAROXABAN
     Route: 048
  17. PREDNISOLONE. [Concomitant]
     Active Substance: PREDNISOLONE
     Indication: T-CELL LYMPHOMA
     Route: 065
     Dates: start: 20170419, end: 20170421
  18. DEXAMETHASONE. [Concomitant]
     Active Substance: DEXAMETHASONE
     Indication: T-CELL LYMPHOMA
     Route: 048
     Dates: start: 20170518, end: 20170519
  19. ONDANSETRON [Concomitant]
     Active Substance: ONDANSETRON
     Indication: PROPHYLAXIS OF NAUSEA AND VOMITING
     Route: 048
     Dates: start: 20170505
  20. DAUNORUBICIN [Concomitant]
     Active Substance: DAUNORUBICIN
     Indication: T-CELL LYMPHOMA
     Route: 042
     Dates: start: 20170505, end: 20170505
  21. RANITIDINE. [Concomitant]
     Active Substance: RANITIDINE
     Indication: PROPHYLAXIS
     Route: 048
     Dates: start: 20170419
  22. DEXAMETHASONE. [Concomitant]
     Active Substance: DEXAMETHASONE
     Indication: T-CELL LYMPHOMA
     Route: 048
     Dates: start: 20170421, end: 20170424
  23. PARACETAMOL [Concomitant]
     Active Substance: ACETAMINOPHEN
     Indication: PAIN
     Route: 048
     Dates: start: 20170420, end: 20170421
  24. PARACETAMOL [Concomitant]
     Active Substance: ACETAMINOPHEN
     Indication: PAIN
     Route: 048
     Dates: start: 20170419, end: 20170419
  25. RASBURICASE [Concomitant]
     Active Substance: RASBURICASE
     Indication: T-CELL LYMPHOMA
     Route: 042
     Dates: start: 20170419, end: 20170422
  26. MOVICOL [Concomitant]
     Active Substance: POLYETHYLENE GLYCOL 3350\POTASSIUM CHLORIDE\SODIUM BICARBONATE\SODIUM CHLORIDE
     Indication: CONSTIPATION
     Dosage: 9 SACHETS
     Route: 048
     Dates: start: 20170503, end: 20170504
  27. MOVICOL [Concomitant]
     Active Substance: POLYETHYLENE GLYCOL 3350\POTASSIUM CHLORIDE\SODIUM BICARBONATE\SODIUM CHLORIDE
     Indication: CONSTIPATION
     Dosage: 6 SACHETS
     Route: 048
     Dates: start: 20170505
  28. METHOTREXATE. [Concomitant]
     Active Substance: METHOTREXATE
     Indication: T-CELL LYMPHOMA
     Route: 037
     Dates: start: 20170427, end: 20171004
  29. MOVICOL [Concomitant]
     Active Substance: POLYETHYLENE GLYCOL 3350\POTASSIUM CHLORIDE\SODIUM BICARBONATE\SODIUM CHLORIDE
     Indication: CONSTIPATION
     Dosage: 4 SACHETS
     Route: 048
     Dates: start: 20170501, end: 20170501
  30. PEGASPARGASE [Concomitant]
     Active Substance: PEGASPARGASE
     Indication: T-CELL LYMPHOMA
     Route: 030
     Dates: start: 20170423, end: 20170423
  31. DEXAMETHASONE. [Concomitant]
     Active Substance: DEXAMETHASONE
     Indication: T-CELL LYMPHOMA
     Route: 048
     Dates: start: 20170424, end: 20170427
  32. ONDANSETRON [Concomitant]
     Active Substance: ONDANSETRON
     Indication: PROPHYLAXIS OF NAUSEA AND VOMITING
     Route: 048
     Dates: start: 20170421, end: 20170424
  33. DIHYDROCODEINE [Concomitant]
     Active Substance: DIHYDROCODEINE
     Indication: PAIN
     Route: 048
     Dates: start: 20170423, end: 20170424
  34. ALLOPURINOL. [Concomitant]
     Active Substance: ALLOPURINOL
     Indication: T-CELL LYMPHOMA
     Route: 048
     Dates: start: 20170420, end: 20170425

REACTIONS (3)
  - Hepatic function abnormal [Recovered/Resolved]
  - Urinary retention [Recovered/Resolved]
  - Catheter site haemorrhage [Recovered/Resolved]

NARRATIVE: CASE EVENT DATE: 20170506
